FAERS Safety Report 6317257-2 (Version None)
Quarter: 2009Q3

REPORT INFORMATION
  Report Type: 
  Country: None (occurrence: None)
  Receive Date: 20090820
  Receipt Date: 20090817
  Transmission Date: 20100115
  Serious: Yes (Other)
  Sender: FDA-Public Use
  Company Number: US-JNJCH-2009022167

PATIENT
  Age: 74 Year
  Sex: Female
  Weight: 81.6 kg

DRUGS (7)
  1. ZYRTEC-D 12 HOUR [Suspect]
     Indication: UPPER RESPIRATORY TRACT CONGESTION
     Dosage: TEXT:1 TABLE DAILY
     Route: 048
  2. LOVASTATIN [Concomitant]
     Indication: DRUG USE FOR UNKNOWN INDICATION
     Dosage: TEXT:UNSPECIFIED 1 DAILY
     Route: 065
  3. METOPROLOL [Concomitant]
     Indication: DRUG USE FOR UNKNOWN INDICATION
     Dosage: TEXT:UNSPECIFIED 1 DAILY
     Route: 065
  4. DIOVAN [Concomitant]
     Indication: DRUG USE FOR UNKNOWN INDICATION
     Dosage: TEXT:UNSPECIFIED 1 DAILY
     Route: 065
  5. VESICARE [Concomitant]
     Indication: MICTURITION DISORDER
     Dosage: TEXT:UNSPECIFIED
     Route: 065
  6. MOMETASONE FUROATE [Concomitant]
     Indication: DRUG USE FOR UNKNOWN INDICATION
     Dosage: TEXT:UNSPECIFIED 4 TIMES DAILY
     Route: 065
  7. NASONEX [Concomitant]
     Indication: DRUG USE FOR UNKNOWN INDICATION
     Dosage: TEXT:UNSPECIFIED
     Route: 065

REACTIONS (3)
  - AGEUSIA [None]
  - ANOSMIA [None]
  - PRODUCT QUALITY ISSUE [None]
